FAERS Safety Report 16124930 (Version 6)
Quarter: 2019Q3

REPORT INFORMATION
  Report Type: Report from Study
  Country: BR (occurrence: BR)
  Receive Date: 20190327
  Receipt Date: 20190930
  Transmission Date: 20191004
  Serious: Yes (Other)
  Sender: FDA-Public Use
  Company Number: PHHY2019BR065087

PATIENT
  Age: 44 Year
  Sex: Female

DRUGS (10)
  1. KISQALI [Suspect]
     Active Substance: RIBOCICLIB
     Indication: PRODUCT USED FOR UNKNOWN INDICATION
     Dosage: UNK
     Route: 065
     Dates: start: 20190326
  2. LETROZOLE. [Suspect]
     Active Substance: LETROZOLE
     Indication: PRODUCT USED FOR UNKNOWN INDICATION
     Dosage: 2.5 MG, QD
     Route: 065
     Dates: start: 2017
  3. AFINITOR [Suspect]
     Active Substance: EVEROLIMUS
     Dosage: UNK
     Route: 065
     Dates: start: 201803, end: 201903
  4. KISQALI [Suspect]
     Active Substance: RIBOCICLIB
     Dosage: 2 DF, UNK
     Route: 065
  5. AROMASIN [Suspect]
     Active Substance: EXEMESTANE
     Indication: PRODUCT USED FOR UNKNOWN INDICATION
     Dosage: UNK
     Route: 065
  6. KISQALI [Suspect]
     Active Substance: RIBOCICLIB
     Dosage: 3 DF, UNK
     Route: 065
  7. ZOLADEX [Suspect]
     Active Substance: GOSERELIN ACETATE
     Indication: PRODUCT USED FOR UNKNOWN INDICATION
     Dosage: UNK
     Route: 065
     Dates: start: 201509
  8. LETROZOLE. [Suspect]
     Active Substance: LETROZOLE
     Dosage: UNK
     Route: 065
     Dates: start: 20190326
  9. AFINITOR [Suspect]
     Active Substance: EVEROLIMUS
     Indication: PRODUCT USED FOR UNKNOWN INDICATION
     Dosage: 5 MG, QD
     Route: 065
  10. KISQALI [Suspect]
     Active Substance: RIBOCICLIB
     Dosage: 2 DF, UNK
     Route: 065

REACTIONS (27)
  - Tumour pain [Not Recovered/Not Resolved]
  - Movement disorder [Unknown]
  - Hepatotoxicity [Unknown]
  - Neoplasm [Unknown]
  - Device related infection [Unknown]
  - Aphthous ulcer [Recovered/Resolved]
  - Dysgeusia [Unknown]
  - Lymphoedema [Unknown]
  - Breast discolouration [Recovering/Resolving]
  - Oedema [Unknown]
  - Poisoning [Recovered/Resolved]
  - Migraine [Unknown]
  - Periorbital pain [Unknown]
  - General physical health deterioration [Unknown]
  - Back pain [Unknown]
  - Skin plaque [Not Recovered/Not Resolved]
  - Intraductal proliferative breast lesion [Unknown]
  - Skin lesion [Unknown]
  - Headache [Unknown]
  - Nausea [Unknown]
  - Pain [Unknown]
  - Drug ineffective [Unknown]
  - Lymphadenopathy [Unknown]
  - Neuralgia [Unknown]
  - Inappropriate schedule of product administration [Unknown]
  - Disease progression [Unknown]
  - Oedema peripheral [Not Recovered/Not Resolved]

NARRATIVE: CASE EVENT DATE: 20190329
